FAERS Safety Report 26092067 (Version 2)
Quarter: 2025Q4

REPORT INFORMATION
  Report Type: Spontaneous
  Country: US (occurrence: US)
  Receive Date: 20251126
  Receipt Date: 20251210
  Transmission Date: 20260118
  Serious: Yes (Hospitalization, Other)
  Sender: BIOVITRUM
  Company Number: US-BIOVITRUM-2025-US-005194

PATIENT
  Age: 76 Year
  Sex: Female

DRUGS (3)
  1. DOPTELET [Suspect]
     Active Substance: AVATROMBOPAG MALEATE
     Indication: Immune thrombocytopenia
     Dosage: AS ORDERED
     Route: 048
  2. DOPTELET [Suspect]
     Active Substance: AVATROMBOPAG MALEATE
     Dosage: 1 DAILY, UNIT: 30 TABLETS, 1X1 DAILY
     Route: 048
  3. RITUXAN [Suspect]
     Active Substance: RITUXIMAB
     Indication: Product used for unknown indication

REACTIONS (3)
  - Product dose omission issue [Unknown]
  - Platelet count decreased [Unknown]
  - Thrombosis [Unknown]

NARRATIVE: CASE EVENT DATE: 20250101
